FAERS Safety Report 4409538-4 (Version None)
Quarter: 2004Q3

REPORT INFORMATION
  Report Type: 
  Country: None (occurrence: None)
  Receive Date: 20040723
  Receipt Date: 20040712
  Transmission Date: 20050211
  Serious: Yes (Death)
  Sender: FDA-Public Use
  Company Number: 2004AP03603

PATIENT
  Age: 78 Year
  Sex: Male

DRUGS (4)
  1. CASODEX [Suspect]
     Indication: PROSTATE CANCER
     Dosage: 80 MG DAILY PO
     Route: 048
     Dates: start: 20010202
  2. ZOLADEX [Suspect]
     Indication: PROSTATE CANCER
     Dosage: 10.8 MG Q3M0 SQ
     Route: 058
     Dates: start: 20030820
  3. SELBEX [Suspect]
     Indication: GASTRITIS
     Dosage: 1.5 MG DAILY PO
     Route: 048
     Dates: start: 20010216
  4. LEUPROLIDE ACETATE [Concomitant]

REACTIONS (1)
  - BLOOD ALKALINE PHOSPHATASE INCREASED [None]
